FAERS Safety Report 25591099 (Version 1)
Quarter: 2025Q3

REPORT INFORMATION
  Report Type: Spontaneous
  Country: US (occurrence: None)
  Receive Date: 20250722
  Receipt Date: 20250722
  Transmission Date: 20251020
  Serious: Yes (Hospitalization)
  Sender: FDA-CTU
  Company Number: None

PATIENT
  Sex: Female

DRUGS (12)
  1. KISQALI [Suspect]
     Active Substance: RIBOCICLIB SUCCINATE
     Indication: Metastases to liver
     Dosage: FREQUENCY : DAILY;?
     Route: 048
     Dates: start: 20240731
  2. KISQALI [Suspect]
     Active Substance: RIBOCICLIB SUCCINATE
     Indication: Cholangiocarcinoma
  3. AIR DUO DGHLR INH 113-14 [Concomitant]
  4. ALBUTEROL AER HFA [Concomitant]
  5. AMLODIPINE [Concomitant]
     Active Substance: AMLODIPINE BESYLATE
  6. AMLODIPINE TAB5MG [Concomitant]
  7. ATORVASTATIN TAB 80MG [Concomitant]
  8. CANDESARTAN TAB 16MG [Concomitant]
  9. EFFEXOR XR CAP 75MG [Concomitant]
  10. FAMOTIDINE [Concomitant]
     Active Substance: FAMOTIDINE
  11. HYDROCO/APAP TAB 7.5-325 [Concomitant]
  12. IBUPROFEN TAB 600MG [Concomitant]

REACTIONS (2)
  - COVID-19 [None]
  - Therapy interrupted [None]
